FAERS Safety Report 12545525 (Version 2)
Quarter: 2016Q3

REPORT INFORMATION
  Report Type: Spontaneous
  Country: AU (occurrence: AU)
  Receive Date: 20160711
  Receipt Date: 20160714
  Transmission Date: 20161109
  Serious: Yes (Other)
  Sender: FDA-Public Use
  Company Number: AU-009507513-1607AUS004017

PATIENT
  Sex: Male

DRUGS (2)
  1. VALIUM [Suspect]
     Active Substance: DIAZEPAM
     Dosage: 2 TIMES ON THE SAME DAY
  2. MOMETASONE FUROATE. [Suspect]
     Active Substance: MOMETASONE FUROATE
     Indication: PRODUCT USED FOR UNKNOWN INDICATION
     Dosage: 1-2 SPRAY PER NOSTRIL, DIFFERENT FREQUENCY
     Route: 045

REACTIONS (9)
  - Dyspnoea [Unknown]
  - Oropharyngeal discomfort [Unknown]
  - Chest discomfort [Unknown]
  - Anxiety [Unknown]
  - Underdose [Unknown]
  - Panic reaction [Unknown]
  - Oropharyngeal pain [Unknown]
  - Dysphagia [Unknown]
  - Feeling abnormal [Unknown]
